FAERS Safety Report 6879860-0 (Version None)
Quarter: 2010Q3

REPORT INFORMATION
  Report Type: 
  Country: None (occurrence: None)
  Receive Date: 20100728
  Receipt Date: 20100714
  Transmission Date: 20110219
  Serious: No
  Sender: FDA-Public Use
  Company Number: CN-ROCHE-636784

PATIENT
  Age: 53 Year
  Sex: Male
  Weight: 70 kg

DRUGS (7)
  1. CELLCEPT [Suspect]
     Indication: LIVER TRANSPLANT
     Route: 048
  2. XELODA [Suspect]
     Indication: HEPATIC NEOPLASM MALIGNANT
     Route: 048
     Dates: start: 20090501, end: 20090801
  3. XELODA [Suspect]
     Route: 048
     Dates: start: 20090801
  4. THALIDOMIDE [Concomitant]
     Indication: HEPATIC NEOPLASM MALIGNANT
     Route: 048
     Dates: start: 20090501
  5. PROGRAF [Concomitant]
     Indication: LIVER TRANSPLANT
     Route: 048
  6. VITAMIN B6 [Concomitant]
     Indication: PROPHYLAXIS
     Route: 048
     Dates: start: 20090405
  7. UNSPECIFIED DRUG [Concomitant]
     Indication: LIVER TRANSPLANT
     Route: 048

REACTIONS (11)
  - BLOOD BILIRUBIN INCREASED [None]
  - DACTYLITIS [None]
  - DRY MOUTH [None]
  - DRY SKIN [None]
  - LOWER EXTREMITY MASS [None]
  - NASAL DRYNESS [None]
  - PARONYCHIA [None]
  - SKIN EXFOLIATION [None]
  - SKIN FISSURES [None]
  - SKIN HYPERPIGMENTATION [None]
  - WHITE BLOOD CELL COUNT DECREASED [None]
